FAERS Safety Report 8211479-1 (Version None)
Quarter: 2012Q1

REPORT INFORMATION
  Report Type: 
  Country: None (occurrence: None)
  Receive Date: 20120315
  Receipt Date: 20120309
  Transmission Date: 20120608
  Serious: Yes (Other)
  Sender: FDA-Public Use
  Company Number: BR-PFIZER INC-2012048069

PATIENT
  Age: 81 Year
  Sex: Male
  Weight: 62 kg

DRUGS (6)
  1. METFORMIN [Concomitant]
     Indication: DIABETES MELLITUS
     Dosage: 1700 MG, 3X/DAY (HALF TABLET OF 850 MG AT BREAKFAST AND AT DINNER AND 1 TABLET OF 850 MG AT LUNCH)
  2. INDAPAMIDE [Concomitant]
     Indication: HYPERTENSION
     Dosage: 1.2 MG, 1X/DAY
  3. GLIMEPIRIDE [Concomitant]
     Indication: DIABETES MELLITUS
     Dosage: 2 MG, FASTING
  4. CLONAZEPAM [Concomitant]
     Dosage: 2 MG, 1X/DAY
  5. SUTENT [Suspect]
     Indication: METASTATIC RENAL CELL CARCINOMA
     Dosage: 50 MG, 1X/DAY (CYCLE 4X2)
     Route: 048
     Dates: start: 20120211
  6. ATACAND [Concomitant]
     Indication: HYPERTENSION
     Dosage: 16 MG, 1X/DAY

REACTIONS (9)
  - RASH [None]
  - TONGUE HAEMORRHAGE [None]
  - GLOSSODYNIA [None]
  - NAUSEA [None]
  - AGEUSIA [None]
  - TONGUE DISCOLOURATION [None]
  - DECREASED APPETITE [None]
  - VOMITING [None]
  - TONGUE DISORDER [None]
